FAERS Safety Report 18817591 (Version 2)
Quarter: 2021Q1

REPORT INFORMATION
  Report Type: Spontaneous
  Country: US (occurrence: US)
  Receive Date: 20210201
  Receipt Date: 20210210
  Transmission Date: 20210419
  Serious: Yes (Life-Threatening)
  Sender: FDA-Public Use
  Company Number: US-JUBILANT CADISTA PHARMACEUTICALS-2021JUB00017

PATIENT
  Age: 64 Year
  Sex: Female
  Weight: 70.76 kg

DRUGS (6)
  1. PREDNISONE. [Suspect]
     Active Substance: PREDNISONE
     Dosage: 60 MG (6 TABLETS), 1X/DAY
     Route: 048
     Dates: start: 20201223
  2. IRBESARTAN. [Concomitant]
     Active Substance: IRBESARTAN
     Dosage: 37.5 MG, 1X/DAY
     Route: 048
     Dates: end: 202012
  3. BENADRYL [Suspect]
     Active Substance: DIPHENHYDRAMINE HYDROCHLORIDE
     Indication: DRUG HYPERSENSITIVITY
     Dosage: UNK
     Route: 048
     Dates: start: 20201223
  4. UNSPECIFIED VITAMINS [Concomitant]
     Active Substance: VITAMINS
     Dosage: UNK, 1X/DAY
     Route: 048
  5. PREDNISONE. [Suspect]
     Active Substance: PREDNISONE
     Indication: DRUG HYPERSENSITIVITY
     Dosage: 40 MG (4 TABLETS), 1X/DAY
     Route: 048
     Dates: start: 20201223
  6. METOPROLOL. [Concomitant]
     Active Substance: METOPROLOL
     Dosage: 1 TABLETS, 1X/DAY
     Route: 048

REACTIONS (11)
  - Oral discomfort [Not Recovered/Not Resolved]
  - Paraesthesia oral [Not Recovered/Not Resolved]
  - Hypoaesthesia [Not Recovered/Not Resolved]
  - Chest discomfort [Not Recovered/Not Resolved]
  - Fatigue [Not Recovered/Not Resolved]
  - Feeding disorder [Not Recovered/Not Resolved]
  - Paraesthesia [Not Recovered/Not Resolved]
  - Intentional product misuse [Unknown]
  - Hypoaesthesia oral [Not Recovered/Not Resolved]
  - Drug ineffective [Not Recovered/Not Resolved]
  - Burning sensation [Not Recovered/Not Resolved]

NARRATIVE: CASE EVENT DATE: 20201223
